FAERS Safety Report 7527618-1 (Version None)
Quarter: 2011Q2

REPORT INFORMATION
  Report Type: 
  Country: None (occurrence: None)
  Receive Date: 20110607
  Receipt Date: 20110120
  Transmission Date: 20111010
  Serious: Yes (Other)
  Sender: FDA-Public Use
  Company Number: US-BAYER-201034253NA

PATIENT
  Age: 21 Year
  Sex: Female
  Weight: 52.154 kg

DRUGS (4)
  1. YAZ [Suspect]
     Dosage: UNK UNK, QD
     Route: 048
     Dates: start: 20080101, end: 20080401
  2. LEVAQUIN [Concomitant]
     Dosage: 750 MG, UNK
     Route: 048
  3. LORA TAB [Concomitant]
  4. CLARITIN [Concomitant]

REACTIONS (4)
  - CHOLECYSTITIS CHRONIC [None]
  - CHOLELITHIASIS [None]
  - INJURY [None]
  - CHOLECYSTECTOMY [None]
